FAERS Safety Report 5606212-3 (Version None)
Quarter: 2008Q1

REPORT INFORMATION
  Report Type: 
  Country: None (occurrence: None)
  Receive Date: 20080129
  Receipt Date: 20070212
  Transmission Date: 20080703
  Serious: No
  Sender: FDA-Public Use
  Company Number: A0639217A

PATIENT
  Age: 64 Year
  Sex: Female

DRUGS (6)
  1. WELLBUTRIN [Suspect]
     Indication: DEPRESSION
     Dosage: 100MG THREE TIMES PER DAY
     Route: 048
     Dates: start: 20050101, end: 20050101
  2. SYNTHROID [Concomitant]
  3. ALPRAZOLAM [Concomitant]
  4. ASACOL [Concomitant]
  5. MOBIC [Concomitant]
  6. TEMAZEPAM [Concomitant]

REACTIONS (3)
  - DEPRESSION [None]
  - DRUG INEFFECTIVE [None]
  - NERVOUSNESS [None]
